FAERS Safety Report 17514455 (Version 1)
Quarter: 2020Q1

REPORT INFORMATION
  Report Type: Other
  Country: QA (occurrence: QA)
  Receive Date: 20200307
  Receipt Date: 20200307
  Transmission Date: 20200409
  Serious: Yes (Other)
  Sender: FDA-Public Use
  Company Number: QA-APTAPHARMA INC.-2081369

PATIENT
  Age: 65 Year
  Sex: Male

DRUGS (1)
  1. IBUPROFEN. [Suspect]
     Active Substance: IBUPROFEN
     Indication: ABDOMINAL PAIN
     Route: 065

REACTIONS (4)
  - Tachycardia [Unknown]
  - Peptic ulcer [Unknown]
  - Anaemia [Unknown]
  - Product use in unapproved indication [Unknown]
